FAERS Safety Report 11652383 (Version 5)
Quarter: 2015Q4

REPORT INFORMATION
  Report Type: Report from Study
  Country: US (occurrence: US)
  Receive Date: 20151022
  Receipt Date: 20151214
  Transmission Date: 20160304
  Serious: Yes (Hospitalization, Other)
  Sender: FDA-Public Use
  Company Number: US-BAYER-2015-436015

PATIENT
  Age: 63 Year
  Sex: Female
  Weight: 117.46 kg

DRUGS (6)
  1. ADEMPAS [Suspect]
     Active Substance: RIOCIGUAT
     Indication: PULMONARY HYPERTENSION
     Dosage: UNK
     Dates: start: 20150914
  2. OPSUMIT [Concomitant]
     Active Substance: MACITENTAN
  3. ADEMPAS [Suspect]
     Active Substance: RIOCIGUAT
     Indication: PULMONARY HYPERTENSION
     Dosage: 2.5 MG, TID
     Route: 048
  4. ADEMPAS [Suspect]
     Active Substance: RIOCIGUAT
     Indication: PULMONARY HYPERTENSION
     Dosage: 0.5 MG, TID
     Route: 048
  5. ADEMPAS [Suspect]
     Active Substance: RIOCIGUAT
     Indication: PULMONARY HYPERTENSION
     Dosage: 1 MG, TID
  6. TYVASO [Suspect]
     Active Substance: TREPROSTINIL

REACTIONS (19)
  - Erythema [None]
  - Investigation [Unknown]
  - Ear pain [None]
  - Dyspepsia [None]
  - Dyspnoea [Unknown]
  - Tremor [None]
  - Abdominal distension [None]
  - Nasal congestion [None]
  - Tinnitus [None]
  - Fatigue [None]
  - Dyspnoea [None]
  - Somnolence [None]
  - Haematochezia [None]
  - Headache [None]
  - Hypersomnia [None]
  - Decreased appetite [None]
  - Cough [None]
  - Temperature intolerance [None]
  - Weight decreased [None]

NARRATIVE: CASE EVENT DATE: 20150928
